FAERS Safety Report 5269539-3 (Version None)
Quarter: 2007Q1

REPORT INFORMATION
  Report Type: 
  Country: None (occurrence: None)
  Receive Date: 20061213
  Receipt Date: 20061213
  Transmission Date: 20070707
  Serious: Yes (Other)
  Sender: FDA-Public Use
  Company Number: 2003UW13035

PATIENT
  Age: 68 Year
  Sex: Male
  Weight: 60.3284 kg

DRUGS (7)
  1. IRESSA [Suspect]
     Indication: NON-SMALL CELL LUNG CANCER
     Dates: start: 20030701
  2. GLUCOPHAGE [Concomitant]
  3. LIPITOR [Concomitant]
  4. LASIX [Concomitant]
  5. POTASSIUM ACETATE [Concomitant]
  6. OXYCONTIN [Concomitant]
  7. OXYCODONE HCL [Concomitant]

REACTIONS (4)
  - FEELING HOT AND COLD [None]
  - HOT FLUSH [None]
  - HYPOGLYCAEMIA [None]
  - PAIN IN EXTREMITY [None]
